FAERS Safety Report 14020112 (Version 2)
Quarter: 2017Q4

REPORT INFORMATION
  Report Type: Report from Study
  Country: US (occurrence: US)
  Receive Date: 20170928
  Receipt Date: 20171116
  Transmission Date: 20180321
  Serious: Yes (Other)
  Sender: FDA-Public Use
  Company Number: US-TAKEDA-2017TUS019846

PATIENT
  Age: 42 Year
  Sex: Female

DRUGS (3)
  1. VEDOLIZUMAB [Suspect]
     Active Substance: VEDOLIZUMAB
     Dosage: 300 MG, Q4WEEKS
     Route: 042
     Dates: end: 201704
  2. VEDOLIZUMAB [Suspect]
     Active Substance: VEDOLIZUMAB
     Indication: CROHN^S DISEASE
     Dosage: 300 MG, UNK
     Route: 042
     Dates: start: 2015
  3. VEDOLIZUMAB [Suspect]
     Active Substance: VEDOLIZUMAB
     Dosage: 300 MG, UNK
     Route: 042
     Dates: start: 20171023

REACTIONS (16)
  - Surgery [Unknown]
  - Pruritus [Unknown]
  - Proctotomy [Unknown]
  - Ileostomy [Unknown]
  - Hypoacusis [Unknown]
  - Confusional state [Unknown]
  - Head discomfort [Unknown]
  - Headache [Unknown]
  - Vision blurred [Unknown]
  - Nasopharyngitis [Unknown]
  - Off label use [Unknown]
  - Incision site complication [Not Recovered/Not Resolved]
  - Disturbance in attention [Unknown]
  - Incorrect drug administration duration [Unknown]
  - Perineal fistula [Not Recovered/Not Resolved]
  - Impaired healing [Unknown]

NARRATIVE: CASE EVENT DATE: 201705
